FAERS Safety Report 18163168 (Version 1)
Quarter: 2020Q3

REPORT INFORMATION
  Report Type: Spontaneous
  Country: US (occurrence: US)
  Receive Date: 20200818
  Receipt Date: 20200818
  Transmission Date: 20201103
  Serious: Yes (Life-Threatening, Hospitalization, Other)
  Sender: FDA-Public Use
  Company Number: US-QUAGEN-2020QUALIT00063

PATIENT
  Age: 25 Year
  Sex: Female

DRUGS (18)
  1. TRAZODONE [Suspect]
     Active Substance: TRAZODONE HYDROCHLORIDE
     Indication: SUICIDE ATTEMPT
     Dosage: 35 MG/KG
     Route: 048
  2. GLUCAGON. [Interacting]
     Active Substance: GLUCAGON
     Indication: HYPOTENSION
     Route: 040
  3. VASOPRESSIN. [Interacting]
     Active Substance: VASOPRESSIN
     Indication: HAEMODYNAMIC INSTABILITY
     Dosage: 0.03 UNITS/MIN
     Route: 065
  4. METHYLENE BLUE. [Interacting]
     Active Substance: METHYLENE BLUE
     Route: 040
  5. DEXTROSE. [Interacting]
     Active Substance: DEXTROSE
     Dosage: 50 %
     Route: 042
  6. NOREPINEPHRINE. [Interacting]
     Active Substance: NOREPINEPHRINE
     Indication: HAEMODYNAMIC INSTABILITY
     Dosage: INITIATED AT 2 MCG/MIN AND WAS TITRATED UP TO 180
     Route: 065
  7. CALCIUM GLUCONATE. [Interacting]
     Active Substance: CALCIUM GLUCONATE
     Indication: HYPOTENSION
     Route: 040
  8. INSULIN [Interacting]
     Active Substance: INSULIN NOS
     Dosage: INITIATED AT 0.5 UNITS/KG/H, TITRATED UP TO 5 UNITS/KG/H
     Route: 065
  9. PHENYLEPHRINE [Interacting]
     Active Substance: PHENYLEPHRINE HYDROCHLORIDE
     Indication: HAEMODYNAMIC INSTABILITY
     Dosage: INITIATED AT 20 MCG/MIN AND WAS TITRATED UP TO 180
     Route: 065
  10. DEXTROSE. [Interacting]
     Active Substance: DEXTROSE
     Indication: BLOOD GLUCOSE
     Dosage: 10 %
     Route: 065
  11. SUCCINYLCHOLINE [SUXAMETHONIUM CHLORIDE] [Interacting]
     Active Substance: SUCCINYLCHOLINE
     Indication: ENDOTRACHEAL INTUBATION
     Route: 065
  12. INSULIN [Interacting]
     Active Substance: INSULIN NOS
     Indication: HYPOTENSION
     Dosage: 1 UNIT/KG
     Route: 040
  13. DILTIAZEM. [Suspect]
     Active Substance: DILTIAZEM
     Indication: SUICIDE ATTEMPT
     Dosage: 186 MG/KG
     Route: 048
  14. POTASSIUM CHLORIDE. [Interacting]
     Active Substance: POTASSIUM CHLORIDE
     Indication: BLOOD POTASSIUM
     Route: 065
  15. PROMETHAZINE HYDROCHLORIDE TABLETS, 12.5 MG [Suspect]
     Active Substance: PROMETHAZINE HYDROCHLORIDE
     Indication: SUICIDE ATTEMPT
     Dosage: 17 MG/KG
     Route: 048
  16. ETOMIDATE. [Interacting]
     Active Substance: ETOMIDATE
     Indication: ENDOTRACHEAL INTUBATION
     Route: 065
  17. CALCIUM GLUCONATE. [Interacting]
     Active Substance: CALCIUM GLUCONATE
     Dosage: 1 ML/KG/H
     Route: 065
  18. GLUCAGON. [Interacting]
     Active Substance: GLUCAGON
     Dosage: 5 MG/H
     Route: 065

REACTIONS (11)
  - Vasoplegia syndrome [Recovering/Resolving]
  - Encephalopathy [Recovering/Resolving]
  - Hypotension [Recovering/Resolving]
  - Multiple organ dysfunction syndrome [Recovering/Resolving]
  - Mental status changes [Recovering/Resolving]
  - Intentional product misuse [Unknown]
  - Lactic acidosis [Recovering/Resolving]
  - Electrocardiogram QT prolonged [Recovering/Resolving]
  - Suicide attempt [Unknown]
  - Sinus tachycardia [Recovering/Resolving]
  - Intentional overdose [Unknown]
